FAERS Safety Report 16433080 (Version 1)
Quarter: 2019Q2

REPORT INFORMATION
  Report Type: Spontaneous
  Country: US (occurrence: US)
  Receive Date: 20190614
  Receipt Date: 20190614
  Transmission Date: 20190711
  Serious: No
  Sender: FDA-Public Use
  Company Number: US-MERZ NORTH AMERICA, INC.-19MRZ-00252

PATIENT
  Age: 45 Year
  Sex: Female

DRUGS (2)
  1. XEOMIN [Suspect]
     Active Substance: INCOBOTULINUMTOXINA
     Indication: SKIN COSMETIC PROCEDURE
     Dosage: 40 UNITS/CC, 1.0 CC, 40 UNITS
     Route: 058
     Dates: start: 20190328, end: 20190328
  2. XEOMIN [Suspect]
     Active Substance: INCOBOTULINUMTOXINA
     Dosage: 40 UNITS/CC, 0.15 CC, 6 UNITS
     Route: 058
     Dates: start: 20190411, end: 20190411

REACTIONS (1)
  - Drug ineffective [Recovered/Resolved]

NARRATIVE: CASE EVENT DATE: 201903
